FAERS Safety Report 8508924-0 (Version None)
Quarter: 2012Q3

REPORT INFORMATION
  Report Type: 
  Country: None (occurrence: None)
  Receive Date: 20120703
  Receipt Date: 20120618
  Transmission Date: 20120928
  Serious: Yes (Other)
  Sender: FDA-Public Use
  Company Number: 2011RR-45729

PATIENT
  Age: 63 Year
  Sex: Female

DRUGS (5)
  1. SIMVASTATIN [Suspect]
     Indication: TYPE IIA HYPERLIPIDAEMIA
     Dosage: 80 MG/DAY
  2. ENALAPRIL MALEATE [Concomitant]
  3. SIMVASTATIN [Suspect]
     Indication: TYPE IIA HYPERLIPIDAEMIA
     Dosage: 40 MG/DAY
  4. DILTIAZEM [Suspect]
     Indication: HYPERTENSION
     Dosage: 90 MG, BID
  5. ACETAMINOPHEN [Concomitant]

REACTIONS (4)
  - DRUG INTERACTION [None]
  - MYOPATHY [None]
  - ALANINE AMINOTRANSFERASE INCREASED [None]
  - BLOOD CREATINE PHOSPHOKINASE INCREASED [None]
